FAERS Safety Report 8901802 (Version 1)
Quarter: 2012Q4

REPORT INFORMATION
  Report Type: Spontaneous
  Country: US (occurrence: None)
  Receive Date: 20121106
  Receipt Date: 20121106
  Transmission Date: 20130627
  Serious: Yes (Death)
  Sender: FDA-Public Use
  Company Number: DSA_60447_2012

PATIENT

DRUGS (5)
  1. FLUOROURACIL [Suspect]
     Indication: COLON CANCER
     Route: 040
  2. FLUOROURACIL [Suspect]
     Indication: COLON CANCER
  3. OXALIPLATIN [Suspect]
     Indication: COLON CANCER
  4. LEUCOVORIN [Suspect]
     Indication: COLON CANCER
  5. BEVACIZUMAB [Suspect]
     Indication: COLON CANCER

REACTIONS (1)
  - Sudden death [None]
